FAERS Safety Report 8406545-1 (Version None)
Quarter: 2012Q2

REPORT INFORMATION
  Report Type: 
  Country: None (occurrence: None)
  Receive Date: 20120529
  Receipt Date: 20080402
  Transmission Date: 20120825
  Serious: Yes (Hospitalization)
  Sender: FDA-Public Use
  Company Number: 000225

PATIENT
  Age: 76 Year
  Sex: Male
  Weight: 55 kg

DRUGS (11)
  1. MUCOSTA (REBAMIPIDE) TABLET [Concomitant]
  2. CALBLOCK (AZELNIDIPINE) TABLET [Concomitant]
  3. BLOPRESS (CANDESARTAN CILEXETIL) TABLET [Concomitant]
  4. NIPOLAZIN (MEQUITAZINE) TABLET [Concomitant]
  5. ARGAMATE (CALCIUM POLYSTYRENE SULFONATE) JELLY [Concomitant]
  6. ALLEGRA (FEXOFENADINE HYDROCHLORIDE) TABLET [Concomitant]
  7. PLETAL [Suspect]
     Indication: PERIPHERAL ARTERIAL OCCLUSIVE DISEASE
     Dosage: 50 MG, TID, ORAL
     Route: 048
     Dates: start: 20070511, end: 20080229
  8. RYTHMODAN R (DISOPYRAMIDE PHOSPHATE) TABLET [Concomitant]
  9. ALFAROL (ALFACALCIDOL) CAPSULE [Concomitant]
  10. BUFFERIN [Concomitant]
  11. DORNER (BERAPROST SODIUM) TABLET [Concomitant]

REACTIONS (10)
  - EOSINOPHIL COUNT INCREASED [None]
  - ANAEMIA [None]
  - EOSINOPHILIC PNEUMONIA [None]
  - ACUTE MYOCARDIAL INFARCTION [None]
  - PLATELET COUNT DECREASED [None]
  - CARDIAC FAILURE ACUTE [None]
  - RENAL FAILURE [None]
  - CONDITION AGGRAVATED [None]
  - RENAL ARTERY STENOSIS [None]
  - REFUSAL OF TREATMENT BY PATIENT [None]
